FAERS Safety Report 7752330-3 (Version None)
Quarter: 2011Q3

REPORT INFORMATION
  Report Type: 
  Country: None (occurrence: None)
  Receive Date: 20110915
  Receipt Date: 20110901
  Transmission Date: 20111222
  Serious: Yes (Hospitalization, Other)
  Sender: FDA-Public Use
  Company Number: CA-ELI_LILLY_AND_COMPANY-CA201109000138

PATIENT
  Sex: Female

DRUGS (3)
  1. PAXIL [Concomitant]
  2. ZYPREXA [Suspect]
     Indication: BIPOLAR DISORDER
     Dosage: 5 MG, UNK
  3. VALPROATE SODIUM [Concomitant]

REACTIONS (4)
  - ALVEOLITIS ALLERGIC [None]
  - HYPERGLYCAEMIA [None]
  - RESPIRATORY FAILURE [None]
  - DIABETES MELLITUS [None]
